FAERS Safety Report 4533128-6 (Version None)
Quarter: 2004Q4

REPORT INFORMATION
  Report Type: 
  Country: None (occurrence: None)
  Receive Date: 20041206
  Receipt Date: 20041014
  Transmission Date: 20050328
  Serious: No
  Sender: FDA-Public Use
  Company Number: USA041081135

PATIENT
  Age: 47 Year
  Sex: Female

DRUGS (3)
  1. CYMBALTA (DULOXETINE HYDROCHLORIDE) [Suspect]
     Indication: NEUROPATHY PERIPHERAL
     Dosage: 30 MG DAY
     Dates: start: 20041012
  2. KLONOPIN [Concomitant]
  3. DEMEROL [Concomitant]

REACTIONS (3)
  - FATIGUE [None]
  - INITIAL INSOMNIA [None]
  - SOMNOLENCE [None]
